FAERS Safety Report 7815407-X (Version None)
Quarter: 2011Q4

REPORT INFORMATION
  Report Type: 
  Country: None (occurrence: None)
  Receive Date: 20111014
  Receipt Date: 20111011
  Transmission Date: 20120403
  Serious: No
  Sender: FDA-Public Use
  Company Number: US-B.I. PHARMACEUTICALS,INC./RIDGEFIELD-2011-BP-24080BP

PATIENT
  Sex: Female

DRUGS (2)
  1. BETA BLOCKERS [Concomitant]
  2. PRADAXA [Suspect]
     Indication: CONGESTIVE CARDIOMYOPATHY
     Dosage: 300 MG
     Route: 048
     Dates: start: 20110801

REACTIONS (2)
  - DIZZINESS [None]
  - VISION BLURRED [None]
